FAERS Safety Report 4361376-7 (Version None)
Quarter: 2004Q2

REPORT INFORMATION
  Report Type: 
  Country: None (occurrence: None)
  Receive Date: 20040517
  Receipt Date: 20040507
  Transmission Date: 20050107
  Serious: Yes (Hospitalization)
  Sender: FDA-Public Use
  Company Number: 2004-04-0586

PATIENT
  Age: 49 Year
  Sex: Female

DRUGS (7)
  1. CELESTONE SOLUSPAN [Suspect]
     Indication: URTICARIA
     Dosage: SEE IMAGE
     Route: 042
     Dates: start: 20040311, end: 20040312
  2. CELESTONE SOLUSPAN [Suspect]
     Indication: URTICARIA
     Dosage: SEE IMAGE
     Route: 042
     Dates: start: 20040311, end: 20040315
  3. CELESTONE SOLUSPAN [Suspect]
     Indication: URTICARIA
     Dosage: SEE IMAGE
     Route: 042
     Dates: start: 20040312, end: 20040315
  4. RINDERON TABLETS [Suspect]
     Indication: URTICARIA
     Dosage: 1 MG ORAL
     Route: 048
     Dates: start: 20040311, end: 20040315
  5. MONOAMMONIUM GLYCYRRHIZINATE [Concomitant]
  6. ..... [Concomitant]
  7. REBAMIPIDE [Concomitant]

REACTIONS (5)
  - ERYTHEMA [None]
  - HYPOAESTHESIA [None]
  - PARAESTHESIA [None]
  - PRURITUS [None]
  - PURPURA [None]
